FAERS Safety Report 20102169 (Version 1)
Quarter: 2021Q4

REPORT INFORMATION
  Report Type: Spontaneous
  Country: US (occurrence: None)
  Receive Date: 20211122
  Receipt Date: 20211122
  Transmission Date: 20220303
  Serious: Yes (Life-Threatening, Other)
  Sender: FDA-Public Use
  Company Number: None

PATIENT
  Age: 52 Year
  Sex: Female
  Weight: 92.1 kg

DRUGS (10)
  1. FOSAPREPITANT DIMEGLUMINE [Suspect]
     Active Substance: FOSAPREPITANT DIMEGLUMINE
     Indication: Prophylaxis of nausea and vomiting
     Dosage: OTHER FREQUENCY : ONCE;?
     Route: 042
     Dates: start: 20211122, end: 20211122
  2. FOSAPREPITANT DIMEGLUMINE [Suspect]
     Active Substance: FOSAPREPITANT DIMEGLUMINE
     Indication: Breast cancer
  3. Decadron 4 mg tabs [Concomitant]
     Dates: start: 20211103
  4. Zofran 8 mg tabs [Concomitant]
     Dates: start: 20211103
  5. Compazine 10 mg tabs [Concomitant]
     Dates: start: 20211103
  6. Acetaminophen 650 mg PO (Pre-Med) [Concomitant]
     Dates: start: 20211122
  7. Decadron 10 mg IV push (Pre-Med) [Concomitant]
     Dates: start: 20211122
  8. Famotidine 20 mg IV push (Pre-Med) [Concomitant]
     Dates: start: 20211122
  9. Diphenhydramine 50 mg IV push (Pre-Med) [Concomitant]
     Dates: start: 20211122
  10. Palonosetron 0.25 mg IV (Pre-Med) [Concomitant]
     Dates: start: 20211122

REACTIONS (6)
  - Flushing [None]
  - Hypoaesthesia [None]
  - Heart rate increased [None]
  - Dyspnoea [None]
  - Blood pressure increased [None]
  - Infusion related reaction [None]

NARRATIVE: CASE EVENT DATE: 20211122
